FAERS Safety Report 10644795 (Version 1)
Quarter: 2014Q4

REPORT INFORMATION
  Report Type: Spontaneous
  Country: US (occurrence: US)
  Receive Date: 20141211
  Receipt Date: 20141211
  Transmission Date: 20150529
  Serious: Yes (Other)
  Sender: FDA-Public Use
  Company Number: US-AMGEN-USASP2014095825

PATIENT
  Age: 79 Year
  Sex: Male

DRUGS (5)
  1. TAXOL [Concomitant]
     Active Substance: PACLITAXEL
     Indication: OESOPHAGEAL ADENOCARCINOMA
     Dosage: UNK UNK, Q3WK
  2. DEGARELIX [Concomitant]
     Active Substance: DEGARELIX
     Indication: OESOPHAGEAL ADENOCARCINOMA
  3. XGEVA [Suspect]
     Active Substance: DENOSUMAB
     Indication: PROSTATE CANCER METASTATIC
     Dosage: 120 MG, Q4WK
     Route: 058
  4. LEUPROLIDE                         /00726901/ [Concomitant]
     Indication: OESOPHAGEAL ADENOCARCINOMA
  5. CARBOPLATIN. [Concomitant]
     Active Substance: CARBOPLATIN
     Indication: OESOPHAGEAL ADENOCARCINOMA
     Dosage: UNK UNK, Q3WK

REACTIONS (2)
  - Tooth extraction [Not Recovered/Not Resolved]
  - Osteonecrosis of jaw [Recovered/Resolved]
